FAERS Safety Report 9945926 (Version 1)
Quarter: 2014Q1

REPORT INFORMATION
  Report Type: Spontaneous
  Country: US (occurrence: US)
  Receive Date: 20140303
  Receipt Date: 20140303
  Transmission Date: 20141002
  Serious: No
  Sender: FDA-Public Use
  Company Number: US-AMGEN-USASP2013071953

PATIENT
  Age: 63 Year
  Sex: Female

DRUGS (5)
  1. ENBREL [Suspect]
     Indication: PRODUCT USED FOR UNKNOWN INDICATION
     Dosage: 50 MG, QWK
     Route: 058
  2. SKELAXIN                           /00611501/ [Concomitant]
     Dosage: 800 MG, UNK
  3. FLEXERIL                           /00428402/ [Concomitant]
     Dosage: 10 MG, UNK
  4. TOPROL [Concomitant]
     Dosage: 100 MG, UNK
  5. METHOTREXATE [Concomitant]
     Dosage: 2.5 MG, UNK

REACTIONS (2)
  - Sinusitis [Unknown]
  - Nasopharyngitis [Unknown]
